FAERS Safety Report 25352412 (Version 1)
Quarter: 2025Q2

REPORT INFORMATION
  Report Type: Spontaneous
  Country: ES (occurrence: ES)
  Receive Date: 20250523
  Receipt Date: 20250523
  Transmission Date: 20250717
  Serious: Yes (Other)
  Sender: SANOFI AVENTIS
  Company Number: None

PATIENT
  Age: 81 Year
  Sex: Female

DRUGS (3)
  1. TEICOPLANIN [Suspect]
     Active Substance: TEICOPLANIN
     Indication: Urinary tract infection
     Dosage: 400 UG, QOD
     Dates: start: 20250428, end: 20250430
  2. AMPICILLIN [Suspect]
     Active Substance: AMPICILLIN
     Indication: Urinary tract infection
     Dates: start: 20250427
  3. ENOXAPARIN SODIUM [Suspect]
     Active Substance: ENOXAPARIN SODIUM
     Route: 058
     Dates: start: 20250427, end: 20250430

REACTIONS (1)
  - Hepatitis acute [Unknown]

NARRATIVE: CASE EVENT DATE: 20250430
